FAERS Safety Report 7452537-9 (Version None)
Quarter: 2011Q2

REPORT INFORMATION
  Report Type: 
  Country: None (occurrence: None)
  Receive Date: 20110502
  Receipt Date: 20100913
  Transmission Date: 20111010
  Serious: No
  Sender: FDA-Public Use
  Company Number: US-ASTRAZENECA-2010SE42916

PATIENT
  Sex: Female

DRUGS (5)
  1. NEXIUM [Suspect]
     Indication: COUGH
     Route: 048
     Dates: start: 20100801
  2. GLIMEPIRIDE [Concomitant]
  3. CARDIAC MEDS [Concomitant]
  4. BLOOD PRESSURE MEDS [Concomitant]
  5. NEXIUM [Suspect]
     Indication: GASTROOESOPHAGEAL REFLUX DISEASE
     Route: 048
     Dates: start: 20100801

REACTIONS (1)
  - BLOOD GLUCOSE INCREASED [None]
